FAERS Safety Report 4371751-2 (Version None)
Quarter: 2004Q2

REPORT INFORMATION
  Report Type: 
  Country: None (occurrence: None)
  Receive Date: 20040602
  Receipt Date: 20040521
  Transmission Date: 20050107
  Serious: No
  Sender: FDA-Public Use
  Company Number: 04H-062-0261672-00

PATIENT
  Age: 69 Year
  Sex: Female

DRUGS (4)
  1. NITROPRESS [Suspect]
     Indication: CEREBROVASCULAR SPASM
     Dosage: 20-40 MG, SINGLE DOSE REPEATED, INTRAVENTRICULAR
     Route: 042
  2. NIMODIPINE [Concomitant]
  3. PROPOFOL [Concomitant]
  4. FENTANYL [Concomitant]

REACTIONS (2)
  - ARRHYTHMIA [None]
  - HYPERTENSION [None]
